FAERS Safety Report 11341756 (Version 4)
Quarter: 2015Q4

REPORT INFORMATION
  Report Type: Spontaneous
  Country: JP (occurrence: JP)
  Receive Date: 20150805
  Receipt Date: 20151202
  Transmission Date: 20160304
  Serious: Yes (Death, Other)
  Sender: FDA-Public Use
  Company Number: JP-009507513-1507JPN005196

PATIENT
  Age: 83 Year
  Sex: Male
  Weight: 37.8 kg

DRUGS (14)
  1. ZOLINZA [Suspect]
     Active Substance: VORINOSTAT
     Indication: MYCOSIS FUNGOIDES
     Dosage: 400 MG, QD
     Route: 048
     Dates: start: 20150617, end: 20150622
  2. HERBESSER [Concomitant]
     Active Substance: DILTIAZEM HYDROCHLORIDE
     Indication: ANGINA PECTORIS
     Dosage: 100 MG, QD
     Route: 048
  3. BACTRAMIN [Concomitant]
     Active Substance: SULFAMETHOXAZOLE\TRIMETHOPRIM
     Indication: PNEUMONIA
     Dosage: 1 DF, QD
     Route: 048
  4. HERBAL NOS [Concomitant]
     Active Substance: HERBALS
     Indication: DECREASED APPETITE
  5. DOPAMINE [Concomitant]
     Active Substance: DOPAMINE\DOPAMINE HYDROCHLORIDE
     Dosage: DAILY DOSAGE UNKNOWN
     Route: 051
     Dates: start: 20150707
  6. PREDONINE [Suspect]
     Active Substance: PREDNISOLONE\PREDNISOLONE ACETATE\PREDNISOLONE SODIUM SUCCINATE
     Indication: MYCOSIS FUNGOIDES
     Dosage: 15 MG, QD
     Route: 048
     Dates: start: 1998, end: 20150707
  7. METHYLPREDNISOLONE. [Concomitant]
     Active Substance: METHYLPREDNISOLONE
     Indication: MYCOSIS FUNGOIDES
     Dosage: DIVIDED DOSE FREQUENCY UNKNOWN
     Route: 065
     Dates: start: 20150507
  8. MORPHINE SULFATE. [Concomitant]
     Active Substance: MORPHINE SULFATE
     Indication: ABDOMINAL PAIN
     Dosage: DAILY DOSAGE UNKNOWN
     Route: 065
     Dates: start: 20150702
  9. CLARITIN REDITABS [Concomitant]
     Active Substance: LORATADINE
     Indication: MYCOSIS FUNGOIDES
     Dosage: 10 MG, QD
     Route: 048
  10. MUCOSOLVAN L [Concomitant]
     Active Substance: AMBROXOL HYDROCHLORIDE
     Indication: BRONCHITIS CHRONIC
     Dosage: 45 MG, QD
     Route: 048
  11. HERBAL NOS [Concomitant]
     Active Substance: HERBALS
     Indication: ABDOMINAL PAIN
     Dosage: DAILY DOSAGE UNKNOWN
     Route: 065
     Dates: start: 20150630
  12. TAKEPRON [Concomitant]
     Active Substance: LANSOPRAZOLE
     Indication: GASTRITIS
     Dosage: 15 MG, QD
     Route: 048
  13. METHYLPREDNISOLONE. [Concomitant]
     Active Substance: METHYLPREDNISOLONE
     Dosage: DIVIDED DOSE FREQUENCY UNKNOWN
     Route: 065
     Dates: start: 20150610, end: 20150612
  14. FOY [Concomitant]
     Active Substance: GABEXATE MESYLATE
     Indication: AMYLASE INCREASED
     Dosage: DIVIDED DOSE FREQUENCY UNKNOWN
     Route: 051
     Dates: start: 20150618

REACTIONS (19)
  - Vomiting [Unknown]
  - Amylase increased [Unknown]
  - Cardiac arrest [Not Recovered/Not Resolved]
  - Abdominal pain [Unknown]
  - Gastritis [Unknown]
  - Acidosis [Unknown]
  - Decreased appetite [Unknown]
  - General physical health deterioration [Unknown]
  - Abdominal discomfort [Unknown]
  - Blood pressure decreased [Unknown]
  - Renal disorder [Unknown]
  - Platelet count decreased [Unknown]
  - Nausea [Unknown]
  - Intestinal perforation [Fatal]
  - Respiratory arrest [Not Recovered/Not Resolved]
  - Respiratory rate increased [Unknown]
  - Disease progression [Fatal]
  - Rash [Unknown]
  - Disorientation [Unknown]

NARRATIVE: CASE EVENT DATE: 20150618
